FAERS Safety Report 7379963-0 (Version None)
Quarter: 2011Q1

REPORT INFORMATION
  Report Type: 
  Country: None (occurrence: None)
  Receive Date: 20110318
  Receipt Date: 20110314
  Transmission Date: 20110831
  Serious: Yes (Hospitalization)
  Sender: FDA-Public Use
  Company Number: 2011S1000005

PATIENT
  Age: 77 Year
  Sex: Female
  Weight: 48 kg

DRUGS (11)
  1. DEPAS (ETIZOLAM) [Suspect]
     Dosage: ; PO
     Route: 048
  2. CLOTIAZEPAM [Concomitant]
  3. SERTRALINE HYDROCHLORIDE [Concomitant]
  4. LIVALO [Suspect]
     Indication: HYPERCHOLESTEROLAEMIA
     Dosage: 2 MG; 1X; PO
     Route: 048
     Dates: start: 20090728, end: 20101213
  5. OLMETEC [Concomitant]
  6. VALERIN /00228502/ (VALPROATE SODIUM) [Suspect]
     Dosage: ; PO
     Route: 048
  7. DEPAKENE [Concomitant]
  8. FLUNITRAZEPAM (FLUNITRAZEPAM) [Suspect]
     Dosage: ; PO
     Route: 048
  9. ESTAZOLAM [Concomitant]
  10. METFORMIN HCL [Concomitant]
  11. ABILIFY [Suspect]
     Dosage: ; PO
     Route: 048

REACTIONS (5)
  - RHABDOMYOLYSIS [None]
  - BLOOD UREA INCREASED [None]
  - ASPARTATE AMINOTRANSFERASE INCREASED [None]
  - MYALGIA [None]
  - BLOOD POTASSIUM INCREASED [None]
